FAERS Safety Report 9706002 (Version 2)
Quarter: 2014Q2

REPORT INFORMATION
  Report Type: Spontaneous
  Country: US (occurrence: US)
  Receive Date: 20131122
  Receipt Date: 20140613
  Transmission Date: 20141212
  Serious: Yes (Other)
  Sender: FDA-Public Use
  Company Number: US-RB-060850-13

PATIENT
  Age: 26 Year
  Sex: Female
  Weight: 93 kg

DRUGS (2)
  1. SUBUTEX [Suspect]
     Indication: DRUG DEPENDENCE
     Route: 060
     Dates: start: 20130208, end: 20130823
  2. NICOTINE [Concomitant]
     Indication: PRODUCT USED FOR UNKNOWN INDICATION
     Dosage: 9 CIGARETTES DAILY
     Route: 055
     Dates: start: 1994

REACTIONS (2)
  - Maternal exposure during pregnancy [Recovered/Resolved]
  - Premature delivery [Recovered/Resolved]
